FAERS Safety Report 12343220 (Version 2)
Quarter: 2016Q2

REPORT INFORMATION
  Report Type: Spontaneous
  Country: GB (occurrence: GB)
  Receive Date: 20160506
  Receipt Date: 20160526
  Transmission Date: 20160815
  Serious: Yes (Other)
  Sender: FDA-Public Use
  Company Number: GB-GILEAD-2016-0211948

PATIENT
  Age: 47 Year
  Sex: Female

DRUGS (1)
  1. ATRIPLA [Suspect]
     Active Substance: EFAVIRENZ\EMTRICITABINE\TENOFOVIR DISOPROXIL FUMARATE
     Indication: HEPATITIS C
     Dosage: UNK
     Route: 065

REACTIONS (2)
  - Surgery [Unknown]
  - Off label use [Not Recovered/Not Resolved]
